FAERS Safety Report 9298202 (Version 1)
Quarter: 2013Q2

REPORT INFORMATION
  Report Type: Spontaneous
  Country: ES (occurrence: ES)
  Receive Date: 20130520
  Receipt Date: 20130520
  Transmission Date: 20140414
  Serious: Yes (Death)
  Sender: FDA-Public Use
  Company Number: ES-ROCHE-1211965

PATIENT
  Sex: Male

DRUGS (3)
  1. ACTILYSE [Suspect]
     Indication: ATRIAL THROMBOSIS
     Dosage: 1-HOUR ADMINISTRATIONS
     Route: 065
     Dates: start: 200311
  2. ACETYLSALICYLIC ACID [Concomitant]
  3. ENALAPRIL [Concomitant]

REACTIONS (2)
  - Treatment failure [Fatal]
  - Cardiogenic shock [Fatal]
